FAERS Safety Report 7347601-9 (Version None)
Quarter: 2011Q1

REPORT INFORMATION
  Report Type: 
  Country: None (occurrence: None)
  Receive Date: 20110311
  Receipt Date: 20110308
  Transmission Date: 20110831
  Serious: Yes (Other)
  Sender: FDA-Public Use
  Company Number: US-AMGEN-USASP2011011928

PATIENT
  Age: 60 Year
  Sex: Male

DRUGS (2)
  1. NPLATE [Suspect]
     Indication: IDIOPATHIC THROMBOCYTOPENIC PURPURA
     Dosage: 9 A?G/KG, UNK
     Dates: start: 20100701, end: 20100901
  2. NPLATE [Suspect]
     Dates: start: 20100701, end: 20100921

REACTIONS (3)
  - MYELODYSPLASTIC SYNDROME [None]
  - DRUG INEFFECTIVE [None]
  - THERAPEUTIC RESPONSE DECREASED [None]
